FAERS Safety Report 19180350 (Version 2)
Quarter: 2021Q2

REPORT INFORMATION
  Report Type: Spontaneous
  Country: US (occurrence: US)
  Receive Date: 20210426
  Receipt Date: 20210503
  Transmission Date: 20210717
  Serious: No
  Sender: FDA-Public Use
  Company Number: US-PFIZER INC-2020026707

PATIENT

DRUGS (2)
  1. SERTRALINE HCL [Suspect]
     Active Substance: SERTRALINE HYDROCHLORIDE
     Dosage: 500 MG, SINGLE (FIVE 100 MG TABLETS, THE OTHER NIGHT)
  2. SERTRALINE HCL [Suspect]
     Active Substance: SERTRALINE HYDROCHLORIDE
     Dosage: UNK

REACTIONS (5)
  - Suspected product tampering [Unknown]
  - Poor quality product administered [Unknown]
  - Overdose [Unknown]
  - Suspected counterfeit product [Unknown]
  - Drug ineffective [Unknown]
